FAERS Safety Report 5062261-8 (Version None)
Quarter: 2006Q3

REPORT INFORMATION
  Report Type: 
  Country: None (occurrence: None)
  Receive Date: 20060721
  Receipt Date: 20060711
  Transmission Date: 20061208
  Serious: Yes (Life-Threatening, Other)
  Sender: FDA-Public Use
  Company Number: 2006077310

PATIENT
  Age: 57 Year
  Sex: Male
  Weight: 80 kg

DRUGS (6)
  1. LIPITOR [Suspect]
     Indication: DRUG USE FOR UNKNOWN INDICATION
     Dosage: 10 MG (1 IN 1 D), ORAL
     Route: 048
     Dates: start: 20060604
  2. JUVELA (TOCOPHEROL) [Concomitant]
  3. ANTIHYPERTENSIVES (ANTIHYPERTENSIVES) [Concomitant]
  4. VANARL N (TOCOPHERYL NICOTINATE) [Concomitant]
  5. BEZAFIBRATE (BEZAFIBRATE) [Concomitant]
  6. BEZATOL - SLOW RELEASE (BEZAFIBRATE) [Concomitant]

REACTIONS (5)
  - BLOOD BILIRUBIN INCREASED [None]
  - BLOOD POTASSIUM DECREASED [None]
  - DIZZINESS [None]
  - HYPERTENSION [None]
  - TREATMENT NONCOMPLIANCE [None]
